FAERS Safety Report 13281980 (Version 1)
Quarter: 2017Q1

REPORT INFORMATION
  Report Type: Spontaneous
  Country: US (occurrence: US)
  Receive Date: 20170301
  Receipt Date: 20170301
  Transmission Date: 20170428
  Serious: No
  Sender: FDA-Public Use
  Company Number: US-FERRINGPH-2016FE06038

PATIENT
  Sex: Female

DRUGS (5)
  1. STIMATE [Suspect]
     Active Substance: DESMOPRESSIN ACETATE
     Indication: MENSTRUAL CYCLE MANAGEMENT
  2. AMICAR [Suspect]
     Active Substance: AMINOCAPROIC ACID
     Indication: MENSTRUAL CYCLE MANAGEMENT
     Route: 065
  3. LYSTEDA [Concomitant]
     Active Substance: TRANEXAMIC ACID
  4. STIMATE [Suspect]
     Active Substance: DESMOPRESSIN ACETATE
     Indication: VON WILLEBRAND^S DISEASE
     Dosage: 1.5 MG, PRN
     Route: 045
     Dates: start: 20160720
  5. AMICAR [Suspect]
     Active Substance: AMINOCAPROIC ACID
     Indication: VON WILLEBRAND^S DISEASE

REACTIONS (2)
  - Swelling face [Unknown]
  - Peripheral swelling [Unknown]
